FAERS Safety Report 10728070 (Version 1)
Quarter: 2015Q1

REPORT INFORMATION
  Report Type: Spontaneous
  Country: HR (occurrence: HR)
  Receive Date: 20150121
  Receipt Date: 20150121
  Transmission Date: 20150721
  Serious: Yes (Hospitalization)
  Sender: FDA-Public Use
  Company Number: HR-PFIZER INC-2015022607

PATIENT
  Age: 35 Year
  Sex: Male
  Weight: 81 kg

DRUGS (5)
  1. CAMPTO [Suspect]
     Active Substance: IRINOTECAN
     Indication: COLON CANCER
     Dosage: 238 MG, 1X/DAY
     Route: 042
     Dates: start: 20140926, end: 20140926
  2. CALCIUMFOLINAT EBEWE [Concomitant]
     Dosage: 795 MG, 1X/DAY
     Route: 042
     Dates: start: 20140926, end: 20140926
  3. FLUOROURACIL PLIVA [Suspect]
     Active Substance: FLUOROURACIL
     Indication: COLON CANCER
     Dosage: 2068 MG, 1X/DAY
     Route: 042
     Dates: start: 20140926, end: 20140927
  4. FLUOROURACIL PLIVA [Suspect]
     Active Substance: FLUOROURACIL
     Dosage: 1591 MG, 1X/DAY
     Route: 042
     Dates: start: 20140926, end: 20140927
  5. KYTRIL [Concomitant]
     Active Substance: GRANISETRON HYDROCHLORIDE
     Indication: PROPHYLAXIS OF NAUSEA AND VOMITING
     Dosage: 1 DF, 1X/DAY
     Route: 042
     Dates: start: 20140926, end: 20140927

REACTIONS (3)
  - Pneumonia [Recovering/Resolving]
  - Leukocytosis [Recovering/Resolving]
  - Pyrexia [Recovering/Resolving]

NARRATIVE: CASE EVENT DATE: 20141007
